FAERS Safety Report 19972368 (Version 1)
Quarter: 2021Q4

REPORT INFORMATION
  Report Type: Spontaneous
  Country: US (occurrence: US)
  Receive Date: 20211020
  Receipt Date: 20211020
  Transmission Date: 20220303
  Serious: No
  Sender: FDA-Public Use
  Company Number: ENDG21-01546

PATIENT
  Sex: Male

DRUGS (1)
  1. CLOMIPHENE CITRATE [Suspect]
     Active Substance: CLOMIPHENE CITRATE
     Indication: Hypogonadism
     Dosage: UNK UNKNOWN, UNKNOWN
     Route: 065

REACTIONS (5)
  - Loss of libido [Unknown]
  - Panic attack [Unknown]
  - Depressed mood [Unknown]
  - Irritability [Unknown]
  - Off label use [Unknown]
